FAERS Safety Report 9279504 (Version 1)
Quarter: 2013Q2

REPORT INFORMATION
  Report Type: Spontaneous
  Country: US (occurrence: US)
  Receive Date: 20130508
  Receipt Date: 20130508
  Transmission Date: 20140414
  Serious: Yes (Hospitalization)
  Sender: FDA-Public Use
  Company Number: US-ALLERGAN-1306310US

PATIENT
  Age: 59 Year
  Sex: Female

DRUGS (8)
  1. BOTOX? [Suspect]
     Indication: MIGRAINE
     Dosage: UNK, SINGLE
     Route: 030
     Dates: start: 20120615, end: 20120615
  2. LABETALOL [Concomitant]
     Indication: HYPERTENSION
     Dosage: 300 MG, BID
     Route: 048
     Dates: start: 201304
  3. LABETALOL [Concomitant]
     Dosage: 200 MG, BID
     Route: 048
     Dates: end: 201304
  4. DILANTIN                           /00017401/ [Concomitant]
     Indication: CONVULSION
     Dosage: UNK
  5. DIABETES MEDICATION NOS [Concomitant]
     Indication: TYPE 2 DIABETES MELLITUS
     Dosage: UNK
     Route: 048
  6. ASTHMA INHALERS NOS [Concomitant]
     Indication: ASTHMA
     Dosage: UNK
  7. CHOLESTEROL MEDICATION NOS [Concomitant]
     Indication: BLOOD CHOLESTEROL INCREASED
     Dosage: UNK
  8. VICODIN [Concomitant]
     Indication: HEADACHE
     Dosage: UNK

REACTIONS (11)
  - Blood pressure inadequately controlled [Unknown]
  - Grand mal convulsion [Unknown]
  - Hypotension [Unknown]
  - Micturition urgency [Unknown]
  - Urinary retention [Unknown]
  - Head injury [Unknown]
  - Chromaturia [Unknown]
  - Bronchitis [Unknown]
  - Pneumonia [Unknown]
  - Bacterial test [Unknown]
  - Loss of consciousness [Recovered/Resolved]
